FAERS Safety Report 22104808 (Version 1)
Quarter: 2023Q1

REPORT INFORMATION
  Report Type: Spontaneous
  Country: JP (occurrence: JP)
  Receive Date: 20230316
  Receipt Date: 20230316
  Transmission Date: 20230418
  Serious: Yes (Death)
  Sender: FDA-Public Use
  Company Number: JP-BAUSCH-BL-2023-004347

PATIENT
  Age: 76 Year
  Sex: Female

DRUGS (1)
  1. TARGRETIN [Suspect]
     Active Substance: BEXAROTENE
     Indication: Cutaneous T-cell lymphoma
     Route: 048
     Dates: start: 20230131, end: 20230209

REACTIONS (2)
  - Malignant neoplasm progression [Fatal]
  - Hypothyroidism [Not Recovered/Not Resolved]

NARRATIVE: CASE EVENT DATE: 20230207
